FAERS Safety Report 5897990-7 (Version None)
Quarter: 2008Q3

REPORT INFORMATION
  Report Type: 
  Country: None (occurrence: None)
  Receive Date: 20080925
  Receipt Date: 20080923
  Transmission Date: 20090109
  Serious: Yes (Other)
  Sender: FDA-Public Use
  Company Number: GB-TEVA-177811ISR

PATIENT
  Age: 66 Year
  Sex: Male

DRUGS (2)
  1. LAMOTRIGINE [Suspect]
     Indication: MUSCLE TWITCHING
     Dates: start: 20070220, end: 20070222
  2. PHENELZINE SULFATE [Suspect]
     Indication: DEPRESSION
     Dates: start: 20031201

REACTIONS (4)
  - DRUG INEFFECTIVE [None]
  - DRUG INTERACTION [None]
  - DYSKINESIA [None]
  - MUSCLE TWITCHING [None]
